FAERS Safety Report 10818241 (Version 2)
Quarter: 2016Q1

REPORT INFORMATION
  Report Type: Spontaneous
  Country: DE (occurrence: DE)
  Receive Date: 20150218
  Receipt Date: 20160129
  Transmission Date: 20160525
  Serious: Yes (Other)
  Sender: FDA-Public Use
  Company Number: DE-BAYER-2015-023895

PATIENT
  Sex: Female

DRUGS (9)
  1. ACETYLSALICYLIC ACID (} 100 MG) [Suspect]
     Active Substance: ASPIRIN
     Indication: PRODUCT USED FOR UNKNOWN INDICATION
     Dosage: 250 MG, ONCE AT 14:30
     Dates: start: 2012, end: 2012
  2. ACETYLSALICYLIC ACID (} 100 MG) [Suspect]
     Active Substance: ASPIRIN
     Indication: PRODUCT USED FOR UNKNOWN INDICATION
     Dosage: 500 MG, ONCE AT 16:30
     Dates: start: 2012, end: 2012
  3. ACETYLSALICYLIC ACID LYSINATE [Suspect]
     Active Substance: ASPIRIN LYSINE
     Indication: DRUG PROVOCATION TEST
     Dosage: 16 MG, ONCE
     Route: 045
     Dates: start: 201407, end: 201407
  4. FLUTICASONE PROPIONATE. [Concomitant]
     Active Substance: FLUTICASONE PROPIONATE
     Route: 055
  5. TIOTROPIUM [Concomitant]
     Active Substance: TIOTROPIUM
  6. PREDNISOLONE. [Concomitant]
     Active Substance: PREDNISOLONE
     Route: 048
  7. ACETYLSALICYLIC ACID LYSINATE [Suspect]
     Active Substance: ASPIRIN LYSINE
     Indication: DRUG PROVOCATION TEST
     Dosage: 16 MG, ONCE
     Route: 045
     Dates: start: 201410, end: 201410
  8. ACETYLSALICYLIC ACID (} 100 MG) [Suspect]
     Active Substance: ASPIRIN
     Indication: PRODUCT USED FOR UNKNOWN INDICATION
     Dosage: UNK - TOOK ONE TABLET ON 2 OCCAISIONS
     Route: 048
  9. ACETYLSALICYLIC ACID (} 100 MG) [Suspect]
     Active Substance: ASPIRIN
     Indication: DRUG PROVOCATION TEST
     Dosage: 125 MG, ONCE AT 12:30
     Route: 048
     Dates: start: 2012, end: 2012

REACTIONS (8)
  - Anaphylactic reaction [Recovered/Resolved]
  - Rhinorrhoea [Recovered/Resolved]
  - Inspiratory capacity decreased [Recovered/Resolved]
  - Dyspnoea [Recovered/Resolved]
  - Hypotension [Recovered/Resolved]
  - Urticaria [Recovered/Resolved]
  - Aspirin-exacerbated respiratory disease [Recovered/Resolved]
  - Cough [Recovered/Resolved]
